FAERS Safety Report 4780554-6 (Version None)
Quarter: 2005Q3

REPORT INFORMATION
  Report Type: 
  Country: None (occurrence: None)
  Receive Date: 20050914
  Receipt Date: 20050427
  Transmission Date: 20060218
  Serious: Yes (Hospitalization)
  Sender: FDA-Public Use
  Company Number: 163-20785-05040543

PATIENT
  Age: 49 Year
  Sex: Female

DRUGS (23)
  1. THALOMID [Suspect]
     Indication: MULTIPLE MYELOMA
     Dosage: 200 MG, DAILY, ORAL; ORAL; 100 MG, DAILY, ORAL
     Route: 048
     Dates: start: 20041019, end: 20041022
  2. THALOMID [Suspect]
     Indication: MULTIPLE MYELOMA
     Dosage: 200 MG, DAILY, ORAL; ORAL; 100 MG, DAILY, ORAL
     Route: 048
     Dates: start: 20041204
  3. THALOMID [Suspect]
     Indication: MULTIPLE MYELOMA
     Dosage: 200 MG, DAILY, ORAL; ORAL; 100 MG, DAILY, ORAL
     Route: 048
     Dates: start: 20050201
  4. . [Concomitant]
  5. VELCADE [Suspect]
     Indication: MULTIPLE MYELOMA
     Dosage: 1.8 MG, INTRAVENOUS; SEE IMAGE
     Route: 042
     Dates: start: 20041016, end: 20041016
  6. VELCADE [Suspect]
     Indication: MULTIPLE MYELOMA
     Dosage: 1.8 MG, INTRAVENOUS; SEE IMAGE
     Route: 042
     Dates: start: 20041019, end: 20041019
  7. VELCADE [Suspect]
     Indication: MULTIPLE MYELOMA
     Dosage: 1.8 MG, INTRAVENOUS; SEE IMAGE
     Route: 042
     Dates: start: 20041023, end: 20041023
  8. VELCADE [Suspect]
     Indication: MULTIPLE MYELOMA
     Dosage: 1.8 MG, INTRAVENOUS; SEE IMAGE
     Route: 042
     Dates: start: 20041026, end: 20041026
  9. VELCADE [Suspect]
     Indication: MULTIPLE MYELOMA
     Dosage: 1.8 MG, INTRAVENOUS; SEE IMAGE
     Route: 042
     Dates: start: 20041204
  10. . [Concomitant]
  11. DEXAMETHASONE [Suspect]
     Indication: MULTIPLE MYELOMA
     Dosage: 40 MG, ORAL; ORAL; 20 MG, DAILY FOR 4 DAY Q3WKS, ORAL
     Route: 048
     Dates: start: 20041019, end: 20041022
  12. DEXAMETHASONE [Suspect]
     Indication: MULTIPLE MYELOMA
     Dosage: 40 MG, ORAL; ORAL; 20 MG, DAILY FOR 4 DAY Q3WKS, ORAL
     Route: 048
     Dates: start: 20041204
  13. DEXAMETHASONE [Suspect]
     Indication: MULTIPLE MYELOMA
     Dosage: 40 MG, ORAL; ORAL; 20 MG, DAILY FOR 4 DAY Q3WKS, ORAL
     Route: 048
     Dates: start: 20050201
  14. . [Concomitant]
  15. CISPLATIN [Suspect]
     Indication: MULTIPLE MYELOMA
     Dosage: 18 MG, INTRAVENOUS; 18 MG, INTRAVENOUS
     Route: 042
     Dates: start: 20041019, end: 20041022
  16. CISPLATIN [Suspect]
     Indication: MULTIPLE MYELOMA
     Dosage: 18 MG, INTRAVENOUS; 18 MG, INTRAVENOUS
     Route: 042
     Dates: start: 20041204
  17. ADRIAMYCIN PFS [Suspect]
     Indication: MULTIPLE MYELOMA
     Dosage: 18 MG, INTRAVENOUS; 18 MG, INTRAVENOUS
     Route: 042
     Dates: start: 20041019, end: 20041022
  18. ADRIAMYCIN PFS [Suspect]
     Indication: MULTIPLE MYELOMA
     Dosage: 18 MG, INTRAVENOUS; 18 MG, INTRAVENOUS
     Route: 042
     Dates: start: 20041204
  19. CYCLOPHOSPHAMIDE [Suspect]
     Indication: MULTIPLE MYELOMA
     Dosage: 700 MG, INTRAVENOUS; 700 MG, INTRAVENOUS
     Route: 042
     Dates: start: 20041019, end: 20041022
  20. CYCLOPHOSPHAMIDE [Suspect]
     Indication: MULTIPLE MYELOMA
     Dosage: 700 MG, INTRAVENOUS; 700 MG, INTRAVENOUS
     Route: 042
     Dates: start: 20041204
  21. ETOPOSIDE [Suspect]
     Indication: MULTIPLE MYELOMA
     Dosage: 70 MG, INTRAVENOUS; 70 MG, INTRAVENOUS
     Route: 042
     Dates: start: 20041019, end: 20041022
  22. ETOPOSIDE [Suspect]
     Indication: MULTIPLE MYELOMA
     Dosage: 70 MG, INTRAVENOUS; 70 MG, INTRAVENOUS
     Route: 042
     Dates: start: 20041204
  23. MELPHALAN (MELPHALAN) [Concomitant]

REACTIONS (8)
  - ABDOMINAL TENDERNESS [None]
  - CLOSTRIDIUM COLITIS [None]
  - DEEP VEIN THROMBOSIS [None]
  - DEHYDRATION [None]
  - DIARRHOEA [None]
  - OEDEMA [None]
  - PYREXIA [None]
  - VOMITING [None]
